FAERS Safety Report 8328964-4 (Version None)
Quarter: 2012Q2

REPORT INFORMATION
  Report Type: 
  Country: None (occurrence: None)
  Receive Date: 20120502
  Receipt Date: 20120426
  Transmission Date: 20120825
  Serious: Yes (Death)
  Sender: FDA-Public Use
  Company Number: AT-SANOFI-AVENTIS-2012SA029760

PATIENT

DRUGS (1)
  1. LOVENOX [Suspect]
     Indication: PROPHYLAXIS
     Route: 058

REACTIONS (1)
  - PULMONARY EMBOLISM [None]
